FAERS Safety Report 21616609 (Version 1)
Quarter: 2022Q4

REPORT INFORMATION
  Report Type: Spontaneous
  Country: CN (occurrence: None)
  Receive Date: 20221118
  Receipt Date: 20221118
  Transmission Date: 20230112
  Serious: Yes (Hospitalization)
  Sender: FDA-Public Use
  Company Number: 2022A373839

PATIENT
  Age: 68 Year
  Sex: Male
  Weight: 80 kg

DRUGS (1)
  1. IMFINZI [Suspect]
     Active Substance: DURVALUMAB
     Indication: Small cell lung cancer extensive stage
     Dosage: USED IN COMBINATION WITH CHEMOTHERAPEUTIC DRUGS, IMFINZI SHOULD BE USED ONCE EVERY 1-2 MONTHS. AS...
     Route: 042
     Dates: start: 20210818

REACTIONS (2)
  - Pleural effusion [Recovered/Resolved]
  - Abdominal distension [Recovered/Resolved]

NARRATIVE: CASE EVENT DATE: 20221101
